FAERS Safety Report 9836598 (Version 1)
Quarter: 2013Q4

REPORT INFORMATION
  Report Type: Spontaneous
  Country: US (occurrence: None)
  Receive Date: 20131121
  Receipt Date: 20131121
  Transmission Date: 20140711
  Serious: No
  Sender: FDA-Public Use
  Company Number: 1000047346

PATIENT
  Age: 77 Year
  Sex: Female

DRUGS (12)
  1. TUDORZA PRESSAIR (ACLIDINIUM BROMIDE) (400 MICROGRAM, POWDER) [Suspect]
     Indication: CHRONIC OBSTRUCTIVE PULMONARY DISEASE
     Dosage: 400 MCG, 2 IN 1 D
     Route: 055
     Dates: start: 201307, end: 201307
  2. TUDORZA PRESSAIR (ACLIDINIUM BROMIDE) (400 MICROGRAM, POWDER) [Suspect]
     Indication: ASTHMA
     Dosage: 400 MCG, 2 IN 1 D
     Route: 055
     Dates: start: 201307, end: 201307
  3. TUDORZA PRESSAIR (ACLIDINIUM BROMIDE) (400 MICROGRAM, POWDER) [Suspect]
     Indication: EMPHYSEMA
     Dosage: 400 MCG, 2 IN 1 D
     Route: 055
     Dates: start: 201307, end: 201307
  4. SYMBICORT [Concomitant]
  5. AMLODIPINE [Concomitant]
  6. SYNTHROID [Concomitant]
  7. SYNTHROID [Concomitant]
  8. XANAX [Concomitant]
  9. NEXIUM [Concomitant]
  10. ZOLOFT [Concomitant]
  11. DYAZIDE [Concomitant]
  12. TYLENOL [Concomitant]

REACTIONS (2)
  - Diarrhoea [None]
  - Flatulence [None]
